FAERS Safety Report 8905477 (Version 2)
Quarter: 2015Q4

REPORT INFORMATION
  Report Type: Spontaneous
  Country: US (occurrence: US)
  Receive Date: 20121112
  Receipt Date: 20151112
  Transmission Date: 20160305
  Serious: Yes (Hospitalization)
  Sender: FDA-Public Use
  Company Number: US-BAYER-2012-116413

PATIENT
  Age: 28 Year
  Sex: Female
  Weight: 83.45 kg

DRUGS (16)
  1. DOXYCYCLINE. [Concomitant]
     Active Substance: DOXYCYCLINE
  2. ACETAMINOPHEN W/OXYCODONE [Concomitant]
     Active Substance: ACETAMINOPHEN\OXYCODONE HYDROCHLORIDE
     Dosage: 10-500 MG
     Route: 048
  3. HYDROCODONE W/ACETAMINOPHEN [Concomitant]
     Active Substance: ACETAMINOPHEN\HYDROCODONE BITARTRATE
     Dosage: 5-500 MG
     Route: 048
  4. CEFUROXIME. [Concomitant]
     Active Substance: CEFUROXIME
     Dosage: 500 MG, UNK
     Route: 048
  5. NAPROXEN. [Concomitant]
     Active Substance: NAPROXEN
     Dosage: 500 MG, UNK
     Route: 048
  6. FLAGYL [Concomitant]
     Active Substance: METRONIDAZOLE\METRONIDAZOLE HYDROCHLORIDE
     Indication: LYMPHADENOPATHY
  7. PENICILLIN VK [Concomitant]
     Active Substance: PENICILLIN V POTASSIUM
     Dosage: 500 MG, UNK
     Route: 048
  8. CLINDAMYCIN [Concomitant]
     Active Substance: CLINDAMYCIN\CLINDAMYCIN PHOSPHATE
     Indication: LYMPHADENOPATHY
     Dosage: 300 MG, UNK
     Route: 048
  9. GIANVI [Suspect]
     Active Substance: DROSPIRENONE\ETHINYL ESTRADIOL
  10. CEPHALEXIN. [Concomitant]
     Active Substance: CEPHALEXIN
     Dosage: 500 MG, UNK
     Route: 048
  11. CLINDAMYCIN [Concomitant]
     Active Substance: CLINDAMYCIN\CLINDAMYCIN PHOSPHATE
     Indication: SIALOADENITIS
  12. ZYRTEC [Concomitant]
     Active Substance: CETIRIZINE HYDROCHLORIDE
     Dosage: 5 MG, UNK
     Route: 048
  13. MEDROL [Concomitant]
     Active Substance: METHYLPREDNISOLONE
  14. PREDNISONE. [Concomitant]
     Active Substance: PREDNISONE
     Dosage: 20 MG, UNK
     Route: 048
  15. ONDANSETRON [Concomitant]
     Active Substance: ONDANSETRON
     Dosage: 8 MG, UNK
     Route: 048
  16. FLAGYL [Concomitant]
     Active Substance: METRONIDAZOLE\METRONIDAZOLE HYDROCHLORIDE
     Indication: SIALOADENITIS

REACTIONS (3)
  - Pulmonary embolism [None]
  - Pyrexia [None]
  - Histiocytic necrotising lymphadenitis [None]

NARRATIVE: CASE EVENT DATE: 2012
